FAERS Safety Report 9053547 (Version 1)
Quarter: 2013Q1

REPORT INFORMATION
  Report Type: Spontaneous
  Country: CH (occurrence: CH)
  Receive Date: 20130208
  Receipt Date: 20130208
  Transmission Date: 20140127
  Serious: Yes (Other)
  Sender: FDA-Public Use
  Company Number: CH-JNJFOC-20130112814

PATIENT
  Age: 33 Year
  Sex: Female

DRUGS (6)
  1. RISPERDAL [Suspect]
     Indication: PSYCHOTIC DISORDER
     Route: 065
     Dates: start: 20120730
  2. RISPERDAL [Suspect]
     Indication: PSYCHOTIC DISORDER
     Route: 065
     Dates: start: 201208, end: 20120926
  3. RISPERDAL [Suspect]
     Indication: PSYCHOTIC DISORDER
     Route: 065
     Dates: start: 20120709
  4. SEROPRAM B [Suspect]
     Indication: DEPRESSION
     Route: 065
     Dates: start: 20120901, end: 20120926
  5. SEROQUEL XR [Suspect]
     Indication: ANXIETY
     Route: 065
     Dates: start: 20120926, end: 20121005
  6. SEROQUEL XR [Suspect]
     Indication: ANXIETY
     Route: 065
     Dates: start: 20121005

REACTIONS (4)
  - Exposure during pregnancy [Unknown]
  - Depression [Unknown]
  - Drug ineffective [Unknown]
  - Anxiety [Unknown]
